FAERS Safety Report 6464632-1 (Version None)
Quarter: 2009Q4

REPORT INFORMATION
  Report Type: 
  Country: None (occurrence: None)
  Receive Date: 20091201
  Receipt Date: 20091123
  Transmission Date: 20100525
  Serious: Yes (Death, Other)
  Sender: FDA-Public Use
  Company Number: CZ-BRISTOL-MYERS SQUIBB COMPANY-14867881

PATIENT
  Age: 23 Year
  Sex: Male

DRUGS (3)
  1. WARFARIN SODIUM [Suspect]
     Indication: ANTICOAGULANT THERAPY
  2. HEPARIN SODIUM [Suspect]
     Indication: ANTICOAGULANT THERAPY
  3. ACTIVASE [Suspect]
     Indication: PULMONARY EMBOLISM
     Dosage: PT RECEIVED 1.5MG ON DAY1; AFTER 3 WEEKS 2 MG/HR FOR 15HRS (24MG TOTAL).

REACTIONS (2)
  - HAEMORRHAGE INTRACRANIAL [None]
  - VENOUS THROMBOSIS [None]
